FAERS Safety Report 22288547 (Version 1)
Quarter: 2023Q2

REPORT INFORMATION
  Report Type: Spontaneous
  Country: FR (occurrence: FR)
  Receive Date: 20230505
  Receipt Date: 20230505
  Transmission Date: 20230722
  Serious: Yes (Hospitalization, Other)
  Sender: FDA-Public Use
  Company Number: FR-TAKEDA-2023TUS045025

PATIENT
  Age: 88 Year
  Sex: Female
  Weight: 96 kg

DRUGS (2)
  1. FEBUXOSTAT [Suspect]
     Active Substance: FEBUXOSTAT
     Indication: Infection
     Dosage: UNK
     Route: 048
     Dates: start: 20230402
  2. BACTRIM [Suspect]
     Active Substance: SULFAMETHOXAZOLE\TRIMETHOPRIM
     Indication: Infection
     Dosage: 3 DOSAGE FORM
     Route: 048
     Dates: start: 20230402

REACTIONS (3)
  - Hallucination, visual [Not Recovered/Not Resolved]
  - Confusional state [Not Recovered/Not Resolved]
  - Product use in unapproved indication [Unknown]

NARRATIVE: CASE EVENT DATE: 20230402
